FAERS Safety Report 9782060 (Version 1)
Quarter: 2013Q4

REPORT INFORMATION
  Report Type: Spontaneous
  Country: CH (occurrence: CH)
  Receive Date: 20131226
  Receipt Date: 20131226
  Transmission Date: 20140711
  Serious: Yes (Life-Threatening, Other)
  Sender: FDA-Public Use
  Company Number: CH-ROCHE-1320037

PATIENT
  Age: 71 Year
  Sex: Male

DRUGS (6)
  1. HERCEPTIN [Suspect]
     Indication: OESOPHAGEAL ADENOCARCINOMA METASTATIC
     Route: 042
     Dates: start: 20121221, end: 20130201
  2. HERCEPTIN [Suspect]
     Route: 065
     Dates: start: 20130524, end: 20130709
  3. XELODA [Suspect]
     Indication: OESOPHAGEAL ADENOCARCINOMA METASTATIC
     Route: 048
     Dates: start: 20121221, end: 20130201
  4. XELODA [Suspect]
     Route: 065
     Dates: start: 20130524, end: 20130709
  5. CARBOPLATIN [Concomitant]
     Route: 065
     Dates: start: 20121221, end: 20130221
  6. CARBOPLATIN [Concomitant]
     Route: 065
     Dates: start: 20130524, end: 20130709

REACTIONS (3)
  - Disease progression [Not Recovered/Not Resolved]
  - Diverticular perforation [Unknown]
  - Retroperitoneal abscess [Unknown]
